FAERS Safety Report 8702566 (Version 2)
Quarter: 2013Q4

REPORT INFORMATION
  Report Type: Spontaneous
  Country: US (occurrence: US)
  Receive Date: 20120803
  Receipt Date: 20131101
  Transmission Date: 20140711
  Serious: No
  Sender: FDA-Public Use
  Company Number: US-009507513-1206USA03496

PATIENT
  Age: 80 Year
  Sex: Female
  Weight: 74.84 kg

DRUGS (5)
  1. ZETIA [Suspect]
     Indication: BLOOD CHOLESTEROL
     Dosage: 10 MG, QD
     Route: 048
     Dates: start: 20120608, end: 20120618
  2. PRILOSEC [Concomitant]
  3. K-DUR [Concomitant]
  4. AMLODIPINE [Concomitant]
  5. BENECOL [Concomitant]

REACTIONS (3)
  - Back pain [Recovering/Resolving]
  - Pain in extremity [Recovering/Resolving]
  - Tenderness [Not Recovered/Not Resolved]
